FAERS Safety Report 9212834 (Version 1)
Quarter: 2013Q1

REPORT INFORMATION
  Report Type: Spontaneous
  Country: US (occurrence: None)
  Receive Date: 20120824
  Receipt Date: 20120824
  Transmission Date: 20140127
  Serious: Yes (Hospitalization)
  Sender: FDA-Public Use
  Company Number: A-NJ2012-66300

PATIENT
  Age: 78 Year
  Sex: Female

DRUGS (4)
  1. VELETRI [Concomitant]
     Indication: PULMONARY ARTERIAL HYPERTENSION
     Dosage: 59 NG/KG, PER MIN, IV DRIP
     Route: 041
     Dates: start: 20101112
  2. ADCIRCA (TADALAFIL) [Concomitant]
  3. LETAIRIS (AMBRISENTAN) (TABLET) (AMBRISENTAN) [Concomitant]
  4. COUMADIN  COUMADIN (WARFARIN SODIUM) [Concomitant]

REACTIONS (1)
  - Fluid overload [None]
